FAERS Safety Report 4523419-7 (Version None)
Quarter: 2004Q4

REPORT INFORMATION
  Report Type: 
  Country: None (occurrence: None)
  Receive Date: 20041117
  Receipt Date: 20040629
  Transmission Date: 20050328
  Serious: Yes (Life-Threatening, Hospitalization)
  Sender: FDA-Public Use
  Company Number: US-JNJFOC-20040704932

PATIENT
  Age: 23 Year
  Sex: Female
  Weight: 130.0009 kg

DRUGS (4)
  1. LEVOFLOXACIN [Suspect]
     Indication: EMBOLISM
     Dosage: 500 MG, 1 IN 1 DAY, INTRAVENOUS
     Route: 042
     Dates: start: 20020403, end: 20020407
  2. COUMADIN [Concomitant]
  3. LOVENOX [Concomitant]
  4. ROCEPHIN [Concomitant]

REACTIONS (2)
  - TORSADE DE POINTES [None]
  - VENTRICULAR TACHYCARDIA [None]
